FAERS Safety Report 15983381 (Version 3)
Quarter: 2022Q1

REPORT INFORMATION
  Report Type: Spontaneous
  Country: AU (occurrence: None)
  Receive Date: 20190220
  Receipt Date: 20220204
  Transmission Date: 20220423
  Serious: Yes (Death, Other)
  Sender: FDA-Public Use
  Company Number: AU-ROCHE-2202172

PATIENT
  Sex: Male
  Weight: 92 kg

DRUGS (10)
  1. AVASTIN [Suspect]
     Active Substance: BEVACIZUMAB
     Indication: Lung adenocarcinoma
     Dosage: 15MG/KG?STRENGTH: 25 MG/ML (INJECTION)?DURATION OF TRATMENT: 6 MONTHS
     Route: 042
     Dates: start: 201809
  2. TECENTRIQ [Suspect]
     Active Substance: ATEZOLIZUMAB
     Indication: Lung adenocarcinoma
     Route: 042
     Dates: start: 201809
  3. CARBOPLATIN [Suspect]
     Active Substance: CARBOPLATIN
     Indication: Lung adenocarcinoma
     Route: 065
     Dates: start: 201809
  4. PACLITAXEL [Suspect]
     Active Substance: PACLITAXEL
     Indication: Lung adenocarcinoma
     Route: 065
     Dates: start: 201809
  5. ATENOLOL [Suspect]
     Active Substance: ATENOLOL
     Indication: Atrial fibrillation
     Route: 065
  6. DICLOFENAC [Concomitant]
     Active Substance: DICLOFENAC
  7. TEMAZEPAM [Concomitant]
     Active Substance: TEMAZEPAM
     Dosage: NOCTE PRN
  8. ENDEP [Concomitant]
     Active Substance: AMITRIPTYLINE HYDROCHLORIDE
     Dosage: NOCTE
  9. COLOXYL TABLETS [Concomitant]
     Dosage: NOCTE PRN
  10. MS CONTIN [Concomitant]
     Active Substance: MORPHINE SULFATE

REACTIONS (5)
  - Off label use [Unknown]
  - Bradycardia [Unknown]
  - Malignant neoplasm progression [Fatal]
  - Fatigue [Unknown]
  - Proteinuria [Unknown]
